FAERS Safety Report 5065016-3 (Version None)
Quarter: 2006Q3

REPORT INFORMATION
  Report Type: 
  Country: None (occurrence: None)
  Receive Date: 20060728
  Receipt Date: 20060720
  Transmission Date: 20061208
  Serious: Yes (Other)
  Sender: FDA-Public Use
  Company Number: CH-ABBOTT-06P-151-0338435-00

PATIENT
  Age: 80 Year
  Sex: Female
  Weight: 51 kg

DRUGS (1)
  1. ZEMPLAR [Suspect]
     Indication: HYPERPARATHYROIDISM SECONDARY
     Dates: start: 20060507, end: 20060515

REACTIONS (5)
  - ASTHENIA [None]
  - FALL [None]
  - GAIT DISTURBANCE [None]
  - HYPERCALCAEMIA [None]
  - MALAISE [None]
